FAERS Safety Report 8310698-3 (Version None)
Quarter: 2012Q2

REPORT INFORMATION
  Report Type: 
  Country: None (occurrence: None)
  Receive Date: 20120425
  Receipt Date: 20120418
  Transmission Date: 20120825
  Serious: Yes (Other)
  Sender: FDA-Public Use
  Company Number: JP-PFIZER INC-2012095693

PATIENT
  Age: 67 Year
  Sex: Female

DRUGS (3)
  1. BROMOCRIPTINE [Concomitant]
     Indication: ACTH-PRODUCING PITUITARY TUMOUR
     Dosage: 2.5 MG, SINGLE
  2. BROMOCRIPTINE [Concomitant]
     Dosage: 2.5 MG, 3X/WEEK
  3. CABERGOLINE [Suspect]
     Indication: ACTH-PRODUCING PITUITARY TUMOUR
     Dosage: 0.25 MG/DAY

REACTIONS (1)
  - ADRENAL INSUFFICIENCY [None]
